FAERS Safety Report 8171565-1 (Version None)
Quarter: 2012Q1

REPORT INFORMATION
  Report Type: 
  Country: None (occurrence: None)
  Receive Date: 20120228
  Receipt Date: 20120224
  Transmission Date: 20120608
  Serious: No
  Sender: FDA-Public Use
  Company Number: US-PFIZER INC-2012049934

PATIENT
  Sex: Male
  Weight: 65.76 kg

DRUGS (3)
  1. PSEUDOEPHEDRINE [Concomitant]
     Indication: SINUS CONGESTION
     Dosage: UNK
  2. AZITHROMYCIN [Suspect]
     Indication: SINUSITIS
     Dosage: 500 MG, 1X/DAY
     Route: 048
     Dates: start: 20120221, end: 20120221
  3. AZITHROMYCIN [Suspect]
     Indication: EAR INFECTION
     Dosage: 250 MG, 1X/DAY
     Dates: start: 20120222

REACTIONS (1)
  - DIZZINESS [None]
